FAERS Safety Report 9850554 (Version 1)
Quarter: 2013Q4

REPORT INFORMATION
  Report Type: Spontaneous
  Country: US (occurrence: None)
  Receive Date: 20131226
  Receipt Date: 20131226
  Transmission Date: 20140711
  Serious: Yes (Other)
  Sender: FDA-Public Use
  Company Number: PHEH2013US004441

PATIENT
  Age: 68 Year
  Sex: Female

DRUGS (4)
  1. DIOVAN [Suspect]
     Dates: start: 201212
  2. INDERAL (PROPRANOLOL HYDROCHLORIDE) [Suspect]
     Indication: HEART RATE ABNORMAL
  3. XANAX (ALPRAZOLAM) [Concomitant]
  4. COUMADINE (WARFARIN SODIUM) [Concomitant]

REACTIONS (7)
  - Asthenia [None]
  - Wrong technique in drug usage process [None]
  - Malaise [None]
  - Visual impairment [None]
  - Vision blurred [None]
  - Heart rate decreased [None]
  - Blood pressure inadequately controlled [None]
